FAERS Safety Report 15988982 (Version 2)
Quarter: 2019Q2

REPORT INFORMATION
  Report Type: Spontaneous
  Country: US (occurrence: US)
  Receive Date: 20190221
  Receipt Date: 20190401
  Transmission Date: 20190711
  Serious: No
  Sender: FDA-Public Use
  Company Number: US-ELI_LILLY_AND_COMPANY-US201902009193

PATIENT
  Sex: Female

DRUGS (1)
  1. TRULICITY [Suspect]
     Active Substance: DULAGLUTIDE
     Indication: PRODUCT USED FOR UNKNOWN INDICATION
     Dosage: 0.75 MG, UNKNOWN
     Route: 058

REACTIONS (7)
  - Influenza like illness [Unknown]
  - Insomnia [Recovered/Resolved]
  - Hunger [Recovered/Resolved]
  - Nausea [Unknown]
  - Sleep disorder due to a general medical condition [Recovered/Resolved]
  - Weight increased [Recovered/Resolved]
  - Vomiting [Unknown]
